FAERS Safety Report 5865438-4 (Version None)
Quarter: 2008Q3

REPORT INFORMATION
  Report Type: 
  Country: None (occurrence: None)
  Receive Date: 20080829
  Receipt Date: 20080731
  Transmission Date: 20090109
  Serious: No
  Sender: FDA-Public Use
  Company Number: US-ABBOTT-08P-163-0467643-00

PATIENT
  Sex: Male
  Weight: 127.57 kg

DRUGS (15)
  1. SIMCOR [Suspect]
     Indication: BLOOD CHOLESTEROL INCREASED
     Dosage: 500/20 MG DAILY AT BEDTIME
     Dates: start: 20080717
  2. ACETYLSALICYLIC ACID SRT [Concomitant]
     Indication: ANTICOAGULANT THERAPY
     Route: 048
  3. SITAGLIPTIN PHOSPHATE [Concomitant]
     Indication: DIABETES MELLITUS
     Dosage: DAILY
     Route: 048
  4. VALSARTAN [Concomitant]
     Indication: HYPERTENSION
     Dosage: DAILY
     Route: 048
  5. PREGABALIN [Concomitant]
     Indication: BACK PAIN
     Dosage: AS NEEDED
     Route: 048
  6. PREGABALIN [Concomitant]
     Indication: SPINAL COLUMN STENOSIS
  7. POTASSIUM CHLORIDE [Concomitant]
     Indication: DIURETIC THERAPY
     Route: 048
  8. FUROSEMIDE [Concomitant]
     Indication: CORONARY ARTERY BYPASS
     Route: 048
  9. SALMETEROL [Concomitant]
     Indication: DYSPNOEA
     Dosage: 50 MG AS NEEDED
     Route: 055
  10. ALLOPURINOL [Concomitant]
     Indication: GOUT
     Route: 048
  11. CLONAZEPAM [Concomitant]
     Indication: ANTIDEPRESSANT THERAPY
     Route: 048
  12. CLONAZEPAM [Concomitant]
     Indication: PANIC DISORDER
  13. MORNIFLUMATE [Concomitant]
     Indication: DYSURIA
     Route: 048
  14. ERGOCALCIFEROL [Concomitant]
     Indication: VITAMIN D DECREASED
     Route: 048
  15. ERGOCALCIFEROL [Concomitant]
     Dosage: 5000 IU WEEKLY BY PRESCRIPTION

REACTIONS (8)
  - ARTHRALGIA [None]
  - BLOOD GLUCOSE INCREASED [None]
  - BLOOD URIC ACID INCREASED [None]
  - ERYTHEMA [None]
  - FLUSHING [None]
  - PAIN IN EXTREMITY [None]
  - PRURITUS [None]
  - TREMOR [None]
